FAERS Safety Report 5284802-8 (Version None)
Quarter: 2007Q1

REPORT INFORMATION
  Report Type: 
  Country: None (occurrence: None)
  Receive Date: 20061229
  Receipt Date: 20051212
  Transmission Date: 20070707
  Serious: Yes (Other)
  Sender: FDA-Public Use
  Company Number: PHEH2005US13216

PATIENT
  Age: 44 Year
  Sex: Male
  Weight: 90.7 kg

DRUGS (2)
  1. CLOZARIL [Suspect]
     Indication: SCHIZOPHRENIA
     Dosage: 300MG  QAM,  400MG QHS,  ORAL
     Route: 048
     Dates: start: 19950101
  2. DEPAKOTE [Suspect]
     Indication: SCHIZOPHRENIA
     Dosage: 500MG QAM, 750MG QHS, ORAL
     Route: 048
     Dates: start: 19950101

REACTIONS (2)
  - LEUKOCYTOSIS [None]
  - THROMBOCYTHAEMIA [None]
